FAERS Safety Report 16974307 (Version 1)
Quarter: 2019Q4

REPORT INFORMATION
  Report Type: Spontaneous
  Country: GB (occurrence: GB)
  Receive Date: 20191030
  Receipt Date: 20191030
  Transmission Date: 20200122
  Serious: Yes (Other)
  Sender: FDA-Public Use
  Company Number: GB-TEVA-2019-GB-1129447

PATIENT
  Age: 68 Year
  Sex: Male
  Weight: 98.87 kg

DRUGS (5)
  1. ROSUVASTATIN. [Concomitant]
     Active Substance: ROSUVASTATIN
  2. RAMIPRIL. [Suspect]
     Active Substance: RAMIPRIL
     Indication: HYPERTENSION
     Route: 048
     Dates: start: 201907
  3. NEBIVOLOL. [Concomitant]
     Active Substance: NEBIVOLOL
  4. TRANDOLAPRIL. [Concomitant]
     Active Substance: TRANDOLAPRIL
  5. ACETYLSALICYLIC ACID [Concomitant]
     Active Substance: ASPIRIN
     Dosage: LOW DOSE

REACTIONS (29)
  - Hyperhidrosis [Unknown]
  - Libido decreased [Unknown]
  - Paraesthesia [Unknown]
  - Asthenia [Unknown]
  - Dry eye [Unknown]
  - Feeling hot [Unknown]
  - Hypoacusis [Unknown]
  - Arthralgia [Unknown]
  - Depressed mood [Unknown]
  - Eye pruritus [Unknown]
  - Non-cardiac chest pain [Unknown]
  - Gynaecomastia [Unknown]
  - Headache [Unknown]
  - Ocular hyperaemia [Unknown]
  - Anxiety [Unknown]
  - Diarrhoea [Unknown]
  - Balance disorder [Unknown]
  - Cough [Unknown]
  - Flushing [Unknown]
  - Muscle spasms [Unknown]
  - Seizure [Unknown]
  - Malaise [Unknown]
  - Erectile dysfunction [Unknown]
  - Dizziness [Unknown]
  - Dyspnoea [Unknown]
  - Fatigue [Unknown]
  - Restlessness [Unknown]
  - Sensory disturbance [Unknown]
  - Sleep disorder [Unknown]
